FAERS Safety Report 13495839 (Version 1)
Quarter: 2017Q2

REPORT INFORMATION
  Report Type: Spontaneous
  Country: JP (occurrence: JP)
  Receive Date: 20170428
  Receipt Date: 20170428
  Transmission Date: 20170830
  Serious: Yes (Other)
  Sender: FDA-Public Use
  Company Number: JP-PFIZER INC-2017179387

PATIENT

DRUGS (7)
  1. METHOTREXATE. [Suspect]
     Active Substance: METHOTREXATE
     Indication: LYMPHOMA
     Route: 029
  2. DOXORUBICIN HCL [Suspect]
     Active Substance: DOXORUBICIN HYDROCHLORIDE
  3. CYCLOPHOSPHAMIDE. [Suspect]
     Active Substance: CYCLOPHOSPHAMIDE
  4. ETOPOSIDE. [Suspect]
     Active Substance: ETOPOSIDE
  5. VINCRISTINE [Suspect]
     Active Substance: VINCRISTINE
  6. PREDNISOLONE. [Suspect]
     Active Substance: PREDNISOLONE
  7. RITUXIMAB [Suspect]
     Active Substance: RITUXIMAB

REACTIONS (2)
  - Dyslalia [Recovered/Resolved]
  - Altered state of consciousness [Recovered/Resolved]
